FAERS Safety Report 24347617 (Version 1)
Quarter: 2024Q3

REPORT INFORMATION
  Report Type: Spontaneous
  Country: US (occurrence: US)
  Receive Date: 20240922
  Receipt Date: 20240922
  Transmission Date: 20241017
  Serious: No
  Sender: SANOFI AVENTIS
  Company Number: US-SA-2024SA267745

PATIENT
  Age: 49 Year
  Sex: Female

DRUGS (1)
  1. DUPIXENT [Suspect]
     Active Substance: DUPILUMAB
     Indication: Dermatitis atopic
     Dosage: 300 MG, QOW
     Route: 058

REACTIONS (6)
  - Sleep disorder due to a general medical condition [Unknown]
  - Pain of skin [Unknown]
  - Sinusitis [Unknown]
  - Dermatitis atopic [Unknown]
  - Pruritus [Unknown]
  - Skin irritation [Unknown]
